FAERS Safety Report 4383898-5 (Version None)
Quarter: 2004Q2

REPORT INFORMATION
  Report Type: 
  Country: None (occurrence: None)
  Receive Date: 20040623
  Receipt Date: 20040623
  Transmission Date: 20050107
  Serious: Yes (Hospitalization)
  Sender: FDA-Public Use
  Company Number: None

PATIENT
  Age: 45 Year
  Sex: Female
  Weight: 108.8633 kg

DRUGS (6)
  1. ABILIFY [Suspect]
     Indication: SCHIZOPHRENIA
     Dosage: 30 MG PO QD
     Route: 048
     Dates: start: 20031001, end: 20040501
  2. GLUCOVANCE [Concomitant]
  3. BUMETANIDE [Concomitant]
  4. KCL TAB [Concomitant]
  5. COLACE [Concomitant]
  6. LEXAPRO [Concomitant]

REACTIONS (2)
  - BRADYCARDIA [None]
  - SYNCOPE [None]
